FAERS Safety Report 9199456 (Version 1)
Quarter: 2013Q1

REPORT INFORMATION
  Report Type: Spontaneous
  Country: US (occurrence: US)
  Receive Date: 20130329
  Receipt Date: 20130329
  Transmission Date: 20140127
  Serious: No
  Sender: FDA-Public Use
  Company Number: US-009507513-1303USA012878

PATIENT
  Age: 3 Year
  Sex: Male

DRUGS (2)
  1. CLARITIN CHEWABLE TABLETS [Suspect]
     Indication: HYPERSENSITIVITY
     Dosage: 10 MG, QD
     Route: 048
     Dates: start: 20130324
  2. CLARITIN CHEWABLE TABLETS [Suspect]
     Indication: RHINORRHOEA

REACTIONS (1)
  - Accidental overdose [Unknown]
